FAERS Safety Report 6374071-X (Version None)
Quarter: 2009Q3

REPORT INFORMATION
  Report Type: 
  Country: None (occurrence: None)
  Receive Date: 20090924
  Receipt Date: 20090625
  Transmission Date: 20100115
  Serious: No
  Sender: FDA-Public Use
  Company Number: US-ASTRAZENECA-2009UW17772

PATIENT
  Sex: Female

DRUGS (1)
  1. SEROQUEL [Suspect]
     Dosage: 5 MG
     Route: 048
     Dates: start: 20090617, end: 20090620

REACTIONS (3)
  - MUSCLE TIGHTNESS [None]
  - MUSCLE TWITCHING [None]
  - TONGUE DISORDER [None]
